FAERS Safety Report 11791496 (Version 1)
Quarter: 2015Q4

REPORT INFORMATION
  Report Type: Spontaneous
  Country: US (occurrence: US)
  Receive Date: 20151201
  Receipt Date: 20151201
  Transmission Date: 20160305
  Serious: No
  Sender: FDA-Public Use
  Company Number: US-BAYER-2015-473771

PATIENT
  Age: 79 Year
  Sex: Female
  Weight: 67.12 kg

DRUGS (6)
  1. MULTIVITAMIN [Concomitant]
     Active Substance: VITAMINS
  2. SYNTHROID [Concomitant]
     Active Substance: LEVOTHYROXINE SODIUM
  3. VITAMIN D [Concomitant]
     Active Substance: CHOLECALCIFEROL
  4. BAYER LOW DOSE [Suspect]
     Active Substance: ASPIRIN
  5. CLARITIN REDITABS [Suspect]
     Active Substance: LORATADINE
  6. LIPITOR [Concomitant]
     Active Substance: ATORVASTATIN CALCIUM

REACTIONS (3)
  - Product use issue [None]
  - Burning sensation [None]
  - Feeling abnormal [None]
